FAERS Safety Report 15713491 (Version 6)
Quarter: 2023Q1

REPORT INFORMATION
  Report Type: Spontaneous
  Country: JP (occurrence: JP)
  Receive Date: 20181212
  Receipt Date: 20230322
  Transmission Date: 20230418
  Serious: Yes (Hospitalization)
  Sender: FDA-Public Use
  Company Number: JP-EISAI MEDICAL RESEARCH-EC-2018-048941

PATIENT
  Age: 74 Year
  Sex: Female

DRUGS (7)
  1. LENVATINIB [Suspect]
     Active Substance: LENVATINIB
     Indication: Papillary thyroid cancer
     Route: 048
     Dates: start: 20161122
  2. LENVATINIB [Suspect]
     Active Substance: LENVATINIB
     Route: 048
  3. LENVATINIB [Suspect]
     Active Substance: LENVATINIB
     Route: 048
  4. LENVATINIB [Suspect]
     Active Substance: LENVATINIB
     Route: 048
     Dates: start: 201809
  5. LENVATINIB [Suspect]
     Active Substance: LENVATINIB
     Route: 048
  6. LENVATINIB [Suspect]
     Active Substance: LENVATINIB
     Route: 048
  7. LENVATINIB [Suspect]
     Active Substance: LENVATINIB
     Route: 048

REACTIONS (14)
  - Wound infection [Recovered/Resolved]
  - Oesophageal fistula [Recovered/Resolved]
  - Impaired healing [Recovered/Resolved]
  - Decreased appetite [Unknown]
  - Neck pain [Unknown]
  - Back pain [Unknown]
  - Nausea [Unknown]
  - Fatigue [Unknown]
  - Palmar-plantar erythrodysaesthesia syndrome [Unknown]
  - Dysphagia [Unknown]
  - Constipation [Unknown]
  - Stomatitis [Unknown]
  - Glossodynia [Unknown]
  - Proteinuria [Unknown]

NARRATIVE: CASE EVENT DATE: 20170120
